FAERS Safety Report 6245810-3 (Version None)
Quarter: 2009Q2

REPORT INFORMATION
  Report Type: 
  Country: None (occurrence: None)
  Receive Date: 20090624
  Receipt Date: 20090614
  Transmission Date: 20091009
  Serious: Yes (Hospitalization)
  Sender: FDA-Public Use
  Company Number: 234814K09USA

PATIENT
  Age: 67 Year
  Sex: Female
  Weight: 59 kg

DRUGS (6)
  1. REBIF [Suspect]
     Indication: MULTIPLE SCLEROSIS
     Dosage: 44 MCG, 3 IN 1 WEEKS, SUBCUTANEOUS ; 22 MCG, 3 IN 1 WEEKS, SUBCUTANEOUS
     Route: 058
     Dates: start: 20090403, end: 20090601
  2. REBIF [Suspect]
     Indication: MULTIPLE SCLEROSIS
     Dosage: 44 MCG, 3 IN 1 WEEKS, SUBCUTANEOUS ; 22 MCG, 3 IN 1 WEEKS, SUBCUTANEOUS
     Route: 058
     Dates: start: 20090101
  3. PLENDIL [Concomitant]
  4. LASIX (FUROSEMIDE /00032601/) [Concomitant]
  5. OXYCODONE HCL [Concomitant]
  6. DILAUDID [Concomitant]

REACTIONS (13)
  - ASTHENIA [None]
  - BLOOD DISORDER [None]
  - DISORIENTATION [None]
  - DRUG WITHDRAWAL SYNDROME [None]
  - DYSARTHRIA [None]
  - HYPOTHYROIDISM [None]
  - INFECTION [None]
  - INJECTION SITE ERYTHEMA [None]
  - NASOPHARYNGITIS [None]
  - PAIN [None]
  - STAPHYLOCOCCAL INFECTION [None]
  - URINARY RETENTION [None]
  - URINARY TRACT INFECTION [None]
